FAERS Safety Report 7658284-2 (Version None)
Quarter: 2011Q3

REPORT INFORMATION
  Report Type: 
  Country: None (occurrence: None)
  Receive Date: 20110802
  Receipt Date: 20110725
  Transmission Date: 20111222
  Serious: Yes (Hospitalization)
  Sender: FDA-Public Use
  Company Number: PYR-11-24

PATIENT
  Age: 5 Year
  Sex: Male

DRUGS (6)
  1. ISONIAZID [Concomitant]
  2. PHENYTOIN [Concomitant]
  3. RIFAMPICIN [Concomitant]
  4. PYRAZINAMIDE [Suspect]
     Indication: MENINGITIS TUBERCULOUS
     Dosage: 25MG/KG/DAY
  5. ETHAMBUTOL HYDROCHLORIDE [Concomitant]
  6. PREDNISOLONE [Concomitant]

REACTIONS (1)
  - OPTIC NEURITIS [None]
